FAERS Safety Report 6433191-1 (Version None)
Quarter: 2009Q4

REPORT INFORMATION
  Report Type: 
  Country: None (occurrence: None)
  Receive Date: 20091109
  Receipt Date: 20091105
  Transmission Date: 20100525
  Serious: Yes (Death, Hospitalization)
  Sender: FDA-Public Use
  Company Number: PHMT2007CA02360

PATIENT
  Sex: Female

DRUGS (2)
  1. ZOMETA [Suspect]
     Indication: BREAST CANCER
     Dosage: 4 MG EVERY 4 WEEKS
     Route: 042
  2. ZOMETA [Suspect]
     Dosage: 3 MG (ONCE A MONTH)
     Route: 042
     Dates: start: 20040101

REACTIONS (4)
  - ABASIA [None]
  - DEATH [None]
  - NEOPLASM MALIGNANT [None]
  - PAIN [None]
